FAERS Safety Report 25852748 (Version 1)
Quarter: 2025Q3

REPORT INFORMATION
  Report Type: Spontaneous
  Country: TW (occurrence: TW)
  Receive Date: 20250926
  Receipt Date: 20250926
  Transmission Date: 20251021
  Serious: Yes (Hospitalization, Other)
  Sender: ORGANON
  Company Number: None

PATIENT
  Age: 67 Year
  Sex: Male
  Weight: 55 kg

DRUGS (4)
  1. EZETIMIBE [Suspect]
     Active Substance: EZETIMIBE
     Indication: Hypercholesterolaemia
     Dosage: 1 DOSAGE FORM, QD (1 TAB ONCE EVERY 1 DAY)
     Route: 048
     Dates: start: 20110830, end: 20150514
  2. EZETIMIBE [Suspect]
     Active Substance: EZETIMIBE
     Route: 048
     Dates: start: 20210830, end: 20230410
  3. EZETIMIBE [Suspect]
     Active Substance: EZETIMIBE
     Route: 048
     Dates: start: 20230425, end: 20240514
  4. GLYXAMBI [Suspect]
     Active Substance: EMPAGLIFLOZIN\LINAGLIPTIN
     Indication: Type 2 diabetes mellitus
     Dosage: 1 DOSAGE FORM, QD (1 TAB ONCE EVERY 1 DAY)
     Route: 048
     Dates: start: 20130712, end: 20150521

REACTIONS (8)
  - Rhabdomyolysis [Recovering/Resolving]
  - Blood creatine phosphokinase abnormal [Unknown]
  - Muscular weakness [Unknown]
  - Acute myocardial infarction [Unknown]
  - Cardiogenic shock [Unknown]
  - Hepatitis acute [Not Recovered/Not Resolved]
  - Dizziness [Unknown]
  - Pain in extremity [Unknown]

NARRATIVE: CASE EVENT DATE: 20150514
